FAERS Safety Report 9771110 (Version 2)
Quarter: 2013Q4

REPORT INFORMATION
  Report Type: Report from Study
  Country: DE (occurrence: DE)
  Receive Date: 20131218
  Receipt Date: 20131218
  Transmission Date: 20140711
  Serious: Yes (Other)
  Sender: FDA-Public Use
  Company Number: DE-VERTEX PHARMACEUTICALS INC-AE-2012-004161

PATIENT
  Age: 36 Year
  Sex: Female
  Weight: 54 kg

DRUGS (9)
  1. VX-770 [Suspect]
     Indication: CYSTIC FIBROSIS
     Dosage: 150 MG
     Route: 048
     Dates: start: 20120120, end: 20120321
  2. VX-770 [Suspect]
     Dosage: UNK
  3. URSOFALK [Concomitant]
  4. KREON [Concomitant]
  5. ZITHROMAX [Concomitant]
  6. COLISTIN [Concomitant]
  7. BERODUAL [Concomitant]
  8. VITAMIN K [Concomitant]
  9. SALBUTAMOL [Concomitant]

REACTIONS (2)
  - Lung disorder [Unknown]
  - Exposure during pregnancy [Recovered/Resolved]
